FAERS Safety Report 9618798 (Version 1)
Quarter: 2013Q4

REPORT INFORMATION
  Report Type: Spontaneous
  Country: MX (occurrence: MX)
  Receive Date: 20131014
  Receipt Date: 20131014
  Transmission Date: 20140711
  Serious: Yes (Other)
  Sender: FDA-Public Use
  Company Number: PHHY2013MX114679

PATIENT
  Age: 59 Year
  Sex: Female

DRUGS (3)
  1. TEGRETOL [Suspect]
     Indication: MAJOR DEPRESSION
     Dosage: 1 DF, DAILY
     Route: 048
     Dates: start: 200310, end: 200810
  2. TEGRETOL [Suspect]
     Dosage: 1.5 DF, DAILY
     Route: 048
     Dates: start: 200810
  3. TEGRETOL [Suspect]
     Dosage: 2 DF, DAILY (0.5 TABLET IN THE MORNING AND 1.5 TABLET IN THE NIGHT)
     Route: 048

REACTIONS (2)
  - Epilepsy [Unknown]
  - Wrong technique in drug usage process [Not Recovered/Not Resolved]
